FAERS Safety Report 8303421 (Version 2)
Quarter: 2012Q4

REPORT INFORMATION
  Report Type: Report from Study
  Country: US (occurrence: US)
  Receive Date: 20111220
  Receipt Date: 20121107
  Transmission Date: 20130627
  Serious: Yes (Other)
  Sender: FDA-Public Use
  Company Number: US-PFIZER INC-2011303597

PATIENT
  Age: 36 Year
  Sex: Female
  Weight: 76 kg

DRUGS (11)
  1. REVATIO [Suspect]
     Indication: PULMONARY ARTERIAL HYPERTENSION
     Dosage: UNK
  2. CICLETANINE [Interacting]
     Indication: PULMONARY ARTERIAL HYPERTENSION
     Dosage: 150 mg, 2x/day
     Route: 048
     Dates: start: 20100824, end: 20100922
  3. CICLETANINE [Interacting]
     Dosage: 150 mg, 2x/day
     Route: 048
     Dates: start: 20101110, end: 20101214
  4. CICLETANINE [Interacting]
     Dosage: 2 DF, 2x/day
     Route: 048
     Dates: start: 20101215
  5. LETAIRIS [Interacting]
     Indication: PULMONARY ARTERIAL HYPERTENSION
     Dosage: 5 mg, 1x/day
     Route: 048
     Dates: start: 20111105, end: 20111121
  6. OXYGEN [Concomitant]
     Dosage: UNK
     Dates: start: 20050422
  7. TORSEMIDE [Concomitant]
     Dosage: UNK
     Dates: start: 20071127
  8. METOLAZONE [Concomitant]
     Dosage: UNK
     Dates: start: 20071019
  9. CLONAZEPAM [Concomitant]
     Dosage: UNK
     Dates: start: 20050218
  10. PAROXETINE [Concomitant]
     Dosage: UNK
     Dates: start: 20050218
  11. POTASSIUM CHLORIDE [Concomitant]
     Dosage: UNK
     Dates: start: 20110331

REACTIONS (3)
  - Drug interaction [Recovered/Resolved]
  - Alanine aminotransferase increased [Recovered/Resolved]
  - Aspartate aminotransferase increased [Recovered/Resolved]
